FAERS Safety Report 5220964-6 (Version None)
Quarter: 2007Q1

REPORT INFORMATION
  Report Type: 
  Country: None (occurrence: None)
  Receive Date: 20070126
  Receipt Date: 20070115
  Transmission Date: 20070707
  Serious: Yes (Hospitalization)
  Sender: FDA-Public Use
  Company Number: 2007GB00090

PATIENT
  Sex: Female

DRUGS (5)
  1. FELODIPINE [Suspect]
     Route: 048
     Dates: start: 20060711, end: 20060713
  2. ALLOPURINOL SODIUM [Concomitant]
     Route: 048
     Dates: start: 20050321
  3. ATENOLOL [Concomitant]
     Route: 048
     Dates: start: 20050510
  4. LISINOPRIL [Concomitant]
     Route: 048
     Dates: start: 20060223
  5. SIMVASTATIN [Concomitant]
     Route: 048
     Dates: start: 20050223

REACTIONS (2)
  - FALL [None]
  - FEMORAL NECK FRACTURE [None]
